FAERS Safety Report 5904107-9 (Version None)
Quarter: 2008Q3

REPORT INFORMATION
  Report Type: 
  Country: None (occurrence: None)
  Receive Date: 20080919
  Receipt Date: 20080822
  Transmission Date: 20090109
  Serious: Yes (Other)
  Sender: FDA-Public Use
  Company Number: US-WYE-H05033608

PATIENT
  Age: 43 Year
  Sex: Female
  Weight: 59.02 kg

DRUGS (7)
  1. PRISTIQ [Suspect]
     Indication: DEPRESSION
     Dosage: 50 MG 1X PER 1 DAY, ORAL
     Route: 048
     Dates: start: 20080618, end: 20080625
  2. ABILIFY [Concomitant]
  3. LYRICA [Concomitant]
  4. PERCOCET [Concomitant]
  5. FELDENE [Concomitant]
  6. ZYDERM (COLLAGEN/LIDOCAINE) [Concomitant]
  7. OXYMORPHONE (OXYMORPHONE) [Concomitant]

REACTIONS (2)
  - ABDOMINAL DISTENSION [None]
  - OEDEMA PERIPHERAL [None]
